FAERS Safety Report 9817635 (Version 1)
Quarter: 2014Q1

REPORT INFORMATION
  Report Type: Report from Study
  Country: JP (occurrence: JP)
  Receive Date: 20140115
  Receipt Date: 20140115
  Transmission Date: 20141002
  Serious: Yes (Other)
  Sender: FDA-Public Use
  Company Number: JP-CELGENEUS-087-50794-14011647

PATIENT
  Age: 63 Year
  Sex: Male

DRUGS (5)
  1. VIDAZA [Suspect]
     Indication: PRODUCT USED FOR UNKNOWN INDICATION
     Route: 065
     Dates: start: 20120227, end: 20120306
  2. VIDAZA [Suspect]
     Route: 065
     Dates: start: 20120416, end: 20120424
  3. VIDAZA [Suspect]
     Route: 065
     Dates: start: 20120521, end: 20120529
  4. VIDAZA [Suspect]
     Route: 065
     Dates: start: 20120717, end: 20120725
  5. VIDAZA [Suspect]
     Route: 065
     Dates: start: 20121009, end: 20121017

REACTIONS (8)
  - Clostridium difficile colitis [Recovered/Resolved]
  - Pseudomembranous colitis [Recovered/Resolved]
  - Diverticulitis [Recovered/Resolved]
  - Febrile neutropenia [Recovered/Resolved]
  - Lip ulceration [Recovered/Resolved]
  - Blood creatinine increased [Recovered/Resolved]
  - White blood cell count decreased [Recovered/Resolved]
  - Neutrophil count decreased [Recovered/Resolved]
